FAERS Safety Report 22595767 (Version 1)
Quarter: 2023Q2

REPORT INFORMATION
  Report Type: Spontaneous
  Country: US (occurrence: US)
  Receive Date: 20230613
  Receipt Date: 20230613
  Transmission Date: 20230722
  Serious: No
  Sender: FDA-Public Use
  Company Number: US-TARO PHARMACEUTICALS USA INC.-2022TAR01248

PATIENT

DRUGS (1)
  1. FEVERALL [Suspect]
     Active Substance: ACETAMINOPHEN
     Indication: Pyrexia
     Dosage: 80 MG, 1DOSE/4HOURS, USED ONE SUPPOSITORY THIS MORNING
     Route: 054
     Dates: start: 20221012

REACTIONS (1)
  - Administration site discomfort [Unknown]

NARRATIVE: CASE EVENT DATE: 20221012
